FAERS Safety Report 5857691-8 (Version None)
Quarter: 2008Q3

REPORT INFORMATION
  Report Type: 
  Country: None (occurrence: None)
  Receive Date: 20080826
  Receipt Date: 20080805
  Transmission Date: 20090109
  Serious: No
  Sender: FDA-Public Use
  Company Number: US-BAYER-200820971NA

PATIENT
  Age: 45 Year
  Sex: Female
  Weight: 59 kg

DRUGS (4)
  1. CLIMARA PRO [Suspect]
     Indication: MENOPAUSAL SYMPTOMS
     Route: 062
  2. CLIMARA PRO [Suspect]
     Route: 062
  3. NEXIUM [Concomitant]
     Indication: GASTROOESOPHAGEAL REFLUX DISEASE
  4. MULTI-VITAMIN [Concomitant]

REACTIONS (8)
  - ANOREXIA [None]
  - BLOOD PRESSURE INCREASED [None]
  - HEADACHE [None]
  - HOT FLUSH [None]
  - IRRITABILITY [None]
  - MENOPAUSAL SYMPTOMS [None]
  - MOOD SWINGS [None]
  - POOR QUALITY SLEEP [None]
